FAERS Safety Report 21017110 (Version 2)
Quarter: 2022Q3

REPORT INFORMATION
  Report Type: Spontaneous
  Country: DE (occurrence: DE)
  Receive Date: 20220628
  Receipt Date: 20220825
  Transmission Date: 20221026
  Serious: Yes (Death, Other)
  Sender: FDA-Public Use
  Company Number: None

PATIENT
  Age: 88 Year
  Sex: Female

DRUGS (15)
  1. PAXLOVID [Suspect]
     Active Substance: NIRMATRELVIR\RITONAVIR
     Indication: COVID-19 treatment
     Dosage: 600MG/400MG DAILY DOSE
     Route: 048
     Dates: start: 20220602, end: 20220606
  2. PAXLOVID [Suspect]
     Active Substance: NIRMATRELVIR\RITONAVIR
     Dosage: 2 DF ([PF-07321332 150 MG]/[RITONAVIR 100 MG]); 2X/DAY(2-0-2))
     Route: 048
     Dates: start: 20220602, end: 20220606
  3. PAXLOVID [Suspect]
     Active Substance: NIRMATRELVIR\RITONAVIR
     Dosage: 2 DF ([PF-07321332 150 MG]/[RITONAVIR 100 MG]); 1X/DAY (0-0-2)
     Route: 048
     Dates: start: 20220605, end: 20220605
  4. PAXLOVID [Suspect]
     Active Substance: NIRMATRELVIR\RITONAVIR
     Dosage: 2 DF ([PF-07321332 150 MG]/[RITONAVIR 100 MG]); 2X/DAY (2-0-2)
     Route: 048
     Dates: start: 20220603, end: 20220604
  5. PAXLOVID [Suspect]
     Active Substance: NIRMATRELVIR\RITONAVIR
     Dosage: 2 DF ([PF-07321332 150 MG]/[RITONAVIR 100 MG]); 1X/DAY(0-0-2)
     Route: 048
     Dates: start: 20220602, end: 20220602
  6. ALENDRONIC ACID [Concomitant]
     Active Substance: ALENDRONIC ACID
     Indication: Osteoporosis
     Dosage: 70 MG, SINGLE
     Dates: start: 20220606, end: 20220606
  7. ENOXAPARIN SODIUM [Concomitant]
     Active Substance: ENOXAPARIN SODIUM
     Indication: Atrial fibrillation
     Dosage: 8000 IU, 2X/DAY (1-0-1)
     Route: 058
  8. HYDROCORTISONE [Concomitant]
     Active Substance: HYDROCORTISONE
     Indication: Adrenocortical insufficiency acute
     Dosage: 10 MG, 3X/DAY (2-1-1)
     Route: 042
     Dates: start: 20220530
  9. BISOPROLOL [Concomitant]
     Active Substance: BISOPROLOL
     Indication: Atrial fibrillation
     Dosage: 5 MG, 1X/DAY (1-0-0)
     Dates: start: 20220530, end: 20220603
  10. BISOPROLOL [Concomitant]
     Active Substance: BISOPROLOL
     Indication: Hypertension
     Dosage: 5 MG, 2X/DAY (1-0-1)
     Dates: start: 20220604
  11. PANTOPRAZOLE [Concomitant]
     Active Substance: PANTOPRAZOLE
     Indication: Prophylaxis against gastrointestinal ulcer
     Dosage: 40 MG, 1X/DAY (1-0-0)
     Dates: start: 20220603
  12. CEFTRIAXONE [Concomitant]
     Active Substance: CEFTRIAXONE
     Indication: COVID-19 pneumonia
     Dosage: 2 G, 1X/DAY (1-0-0)
     Dates: start: 20220530, end: 20220607
  13. CLOPIDOGREL [Concomitant]
     Active Substance: CLOPIDOGREL BISULFATE
     Indication: Acute myocardial infarction
     Dosage: 75 MG, 1X/DAY (1-0-0)
     Dates: start: 20220601
  14. RAMIPRIL [Concomitant]
     Active Substance: RAMIPRIL
     Indication: Hypertension
     Dosage: 2.5 MG, 2X/DAY (1-0-1)
  15. AMLODIPINE [Concomitant]
     Active Substance: AMLODIPINE BESYLATE
     Indication: Hypertension
     Dosage: 5 MG, 1X/DAY (1-0-0)
     Dates: start: 20220603

REACTIONS (7)
  - Drug ineffective [Fatal]
  - COVID-19 [Fatal]
  - Delirium [Fatal]
  - Blood creatine phosphokinase increased [Fatal]
  - Sepsis [Fatal]
  - Off label use [Unknown]
  - Incorrect dose administered [Recovered/Resolved]

NARRATIVE: CASE EVENT DATE: 20220601
